FAERS Safety Report 15951405 (Version 1)
Quarter: 2019Q1

REPORT INFORMATION
  Report Type: Spontaneous
  Country: SE (occurrence: SE)
  Receive Date: 20190212
  Receipt Date: 20190212
  Transmission Date: 20190417
  Serious: Yes (Other)
  Sender: FDA-Public Use
  Company Number: SE-MYLANLABS-2019M1012640

PATIENT
  Sex: Male

DRUGS (2)
  1. DIKLOFENAK ?MYLAN? [Suspect]
     Active Substance: DICLOFENAC SODIUM
     Indication: ARTHRALGIA
  2. DIKLOFENAK ?MYLAN? [Suspect]
     Active Substance: DICLOFENAC SODIUM
     Indication: BACK PAIN
     Dosage: 50 MILLIGRAM

REACTIONS (2)
  - Gastric haemorrhage [Unknown]
  - Faeces discoloured [Unknown]
